FAERS Safety Report 6558611-3 (Version None)
Quarter: 2010Q1

REPORT INFORMATION
  Report Type: 
  Country: None (occurrence: None)
  Receive Date: 20100129
  Receipt Date: 20100119
  Transmission Date: 20100710
  Serious: Yes (Hospitalization)
  Sender: FDA-Public Use
  Company Number: JP-ABBOTT-09P-087-0614551-00

PATIENT
  Sex: Female

DRUGS (18)
  1. HUMIRA [Suspect]
     Indication: RHEUMATOID ARTHRITIS
     Route: 058
     Dates: start: 20090622
  2. HUMIRA [Suspect]
     Dates: start: 20091123
  3. ALFACALCIDOL [Concomitant]
     Indication: PROPHYLAXIS
  4. ALFACALCIDOL [Concomitant]
     Indication: ADVERSE EVENT
  5. FAMOTIDINE [Concomitant]
     Indication: PROPHYLAXIS
  6. FAMOTIDINE [Concomitant]
     Indication: ADVERSE EVENT
  7. DIGOXIN [Concomitant]
     Indication: PROPHYLAXIS
  8. DIGOXIN [Concomitant]
     Indication: ADVERSE EVENT
  9. LEVOTHYROXINE SODIUM [Concomitant]
     Indication: DRUG USE FOR UNKNOWN INDICATION
  10. AMEZINIUM METILSULFATE [Concomitant]
     Indication: DRUG USE FOR UNKNOWN INDICATION
  11. MILNACIPRAN HYDROCHLORIDE [Concomitant]
     Indication: DRUG USE FOR UNKNOWN INDICATION
  12. TACROLIMUS HYDRATE [Concomitant]
     Indication: RHEUMATOID ARTHRITIS
  13. PREDNISOLONE [Concomitant]
     Indication: RHEUMATOID ARTHRITIS
     Route: 048
     Dates: end: 20090720
  14. PREDNISOLONE [Concomitant]
     Route: 048
     Dates: start: 20090721
  15. SPIRONOLACTONE [Concomitant]
     Indication: PROPHYLAXIS
  16. SPIRONOLACTONE [Concomitant]
     Indication: ADVERSE EVENT
  17. CELECOXIB [Concomitant]
     Indication: RHEUMATOID ARTHRITIS
  18. INDOMETACIN [Concomitant]
     Indication: RHEUMATOID ARTHRITIS
     Route: 061

REACTIONS (2)
  - FALL [None]
  - FEMORAL NECK FRACTURE [None]
